FAERS Safety Report 21453320 (Version 2)
Quarter: 2022Q4

REPORT INFORMATION
  Report Type: Spontaneous
  Country: US (occurrence: US)
  Receive Date: 20221013
  Receipt Date: 20221219
  Transmission Date: 20230113
  Serious: Yes (Hospitalization, Other)
  Sender: FDA-Public Use
  Company Number: US-BRISTOL-MYERS SQUIBB COMPANY-2022-118304

PATIENT
  Age: 70 Year
  Sex: Female
  Weight: 71.064 kg

DRUGS (1)
  1. REVLIMID [Suspect]
     Active Substance: LENALIDOMIDE
     Indication: Plasma cell myeloma
     Dosage: FREQ : DAILY ?FREQUENCY: DAILY 1-28
     Route: 048
     Dates: start: 20220913

REACTIONS (3)
  - Pruritus [Not Recovered/Not Resolved]
  - Thrombosis [Recovered/Resolved]
  - Off label use [Unknown]
